FAERS Safety Report 21268962 (Version 4)
Quarter: 2023Q1

REPORT INFORMATION
  Report Type: Spontaneous
  Country: US (occurrence: US)
  Receive Date: 20220830
  Receipt Date: 20230320
  Transmission Date: 20230417
  Serious: Yes (Other)
  Sender: FDA-Public Use
  Company Number: US-PFIZER INC-PV202200050822

PATIENT
  Age: 47 Year
  Sex: Male
  Weight: 190.51 kg

DRUGS (2)
  1. SOMATROPIN [Suspect]
     Active Substance: SOMATROPIN
     Indication: Fatigue
     Dosage: 0.4 MG, DAILY
  2. SOMATROPIN [Suspect]
     Active Substance: SOMATROPIN
     Dosage: 0.6 MG, 1X/DAY

REACTIONS (3)
  - Brain neoplasm [Unknown]
  - Off label use [Unknown]
  - Hypersomnia [Unknown]
